FAERS Safety Report 6212904-8 (Version None)
Quarter: 2009Q2

REPORT INFORMATION
  Report Type: 
  Country: None (occurrence: None)
  Receive Date: 20090603
  Receipt Date: 20090529
  Transmission Date: 20091009
  Serious: Yes (Death)
  Sender: FDA-Public Use
  Company Number: IN-ABBOTT-09P-078-0576744-00

PATIENT
  Age: 60 Year
  Sex: Male

DRUGS (1)
  1. WARFARIN [Suspect]
     Indication: MITRAL VALVE REPLACEMENT

REACTIONS (1)
  - PULMONARY ALVEOLAR HAEMORRHAGE [None]
